FAERS Safety Report 6752239-8 (Version None)
Quarter: 2010Q2

REPORT INFORMATION
  Report Type: 
  Country: None (occurrence: None)
  Receive Date: 20100602
  Receipt Date: 20060111
  Transmission Date: 20101027
  Serious: Yes (Other)
  Sender: FDA-Public Use
  Company Number: HR-BAYER-201025399GPV

PATIENT
  Sex: Female

DRUGS (1)
  1. BETAFERON [Suspect]
     Indication: DRUG USE FOR UNKNOWN INDICATION
     Route: 058
     Dates: start: 20040108

REACTIONS (18)
  - CHILLS [None]
  - DEPRESSION [None]
  - DIPLEGIA [None]
  - DIPLOPIA [None]
  - DIZZINESS [None]
  - ERYTHEMA [None]
  - GAIT DISTURBANCE [None]
  - HYPERAESTHESIA [None]
  - INJECTION SITE ERYTHEMA [None]
  - INJECTION SITE MASS [None]
  - INSOMNIA [None]
  - JOINT INSTABILITY [None]
  - MENORRHAGIA [None]
  - MENSTRUATION IRREGULAR [None]
  - MUSCLE RIGIDITY [None]
  - MUSCULOSKELETAL STIFFNESS [None]
  - MYALGIA [None]
  - PYREXIA [None]
